FAERS Safety Report 5355333-1 (Version None)
Quarter: 2007Q2

REPORT INFORMATION
  Report Type: 
  Country: None (occurrence: None)
  Receive Date: 20070611
  Receipt Date: 20070529
  Transmission Date: 20071010
  Serious: Yes (Other)
  Sender: FDA-Public Use
  Company Number: US-CVT-070023

PATIENT
  Age: 77 Year
  Sex: Male

DRUGS (6)
  1. RANEXA [Suspect]
     Indication: ANGINA PECTORIS
     Dosage: ORAL
     Route: 048
     Dates: start: 20061212, end: 20070115
  2. ALLOPURINOL [Concomitant]
  3. NORVASC /00972401/ (AMLODIPINE) [Concomitant]
  4. ASPIRIN [Concomitant]
  5. STATIN [Concomitant]
  6. NITRATE [Concomitant]

REACTIONS (3)
  - HAEMATOCRIT DECREASED [None]
  - HAEMOGLOBIN DECREASED [None]
  - IDIOPATHIC THROMBOCYTOPENIC PURPURA [None]
